FAERS Safety Report 8444298 (Version 3)
Quarter: 2015Q1

REPORT INFORMATION
  Report Type: Spontaneous
  Country: ES (occurrence: ES)
  Receive Date: 20120307
  Receipt Date: 20150210
  Transmission Date: 20150721
  Serious: Yes (Hospitalization)
  Sender: FDA-Public Use
  Company Number: ES-RANBAXY-2012R1-53384

PATIENT
  Age: 32 Year
  Sex: Male

DRUGS (2)
  1. ASCORBIC ACID 500 MG, CODEINE 10 MG, PARACETAMOL 650 MG [Concomitant]
     Indication: INFLUENZA LIKE ILLNESS
     Dosage: 1-2 CAPSULES, DAILY
     Route: 065
  2. IBUPROFEN. [Suspect]
     Active Substance: IBUPROFEN
     Indication: INFLUENZA LIKE ILLNESS
     Dosage: 600-1200MG/DAY
     Route: 065

REACTIONS (1)
  - Hepatitis cholestatic [Recovered/Resolved]
